FAERS Safety Report 5061372-0 (Version None)
Quarter: 2006Q3

REPORT INFORMATION
  Report Type: 
  Country: None (occurrence: None)
  Receive Date: 20060719
  Receipt Date: 20060719
  Transmission Date: 20061208
  Serious: Yes (Hospitalization)
  Sender: FDA-Public Use
  Company Number: None

PATIENT
  Age: 65 Year
  Sex: Male

DRUGS (15)
  1. FUROSEMIDE [Suspect]
     Indication: HYPERTENSION
     Dosage: 60 MG BID
     Dates: start: 20020901
  2. HYDRALAZINE HCL [Concomitant]
  3. FOLIC ACID [Concomitant]
  4. ISOSORBIDE DINITRATE [Concomitant]
  5. FELODIPINE [Concomitant]
  6. METOPROLOL TARTRATE [Concomitant]
  7. B- 12 [Concomitant]
  8. PLAVIX [Concomitant]
  9. LORATADINE [Concomitant]
  10. OMEPRAZOLE [Concomitant]
  11. TRAZODONE HCL [Concomitant]
  12. HUMULIN 70/30 [Concomitant]
  13. ASPIRIN [Concomitant]
  14. BACLOFEN [Concomitant]
  15. GEMFIBROZIL [Concomitant]

REACTIONS (1)
  - UNEVALUABLE EVENT [None]
